FAERS Safety Report 25959541 (Version 1)
Quarter: 2025Q4

REPORT INFORMATION
  Report Type: Other
  Country: JP (occurrence: JP)
  Receive Date: 20251026
  Receipt Date: 20251026
  Transmission Date: 20260117
  Serious: Yes (Hospitalization, Other)
  Sender: DEXCEL LTD.
  Company Number: JP-DEXPHARM-2025-4938

PATIENT
  Age: 82 Year
  Sex: Male

DRUGS (8)
  1. TOCILIZUMAB [Suspect]
     Active Substance: TOCILIZUMAB
     Indication: COVID-19 pneumonia
  2. DEXAMETHASONE [Suspect]
     Active Substance: DEXAMETHASONE
     Indication: COVID-19 pneumonia
  3. REMDESIVIR [Suspect]
     Active Substance: REMDESIVIR
     Indication: COVID-19 pneumonia
     Dosage: (200 MG ON DAY 1
  4. AMPICILLIN SODIUM\SULBACTAM SODIUM [Suspect]
     Active Substance: AMPICILLIN SODIUM\SULBACTAM SODIUM
     Indication: COVID-19 pneumonia
     Dosage: 3 G/DAY
  5. AZATHIOPRINE [Suspect]
     Active Substance: AZATHIOPRINE
     Dosage: AZATHIOPRINE (25 MG/DAY
  6. PREDNISOLONE [Suspect]
     Active Substance: PREDNISOLONE
     Dosage: LOW-DOSE PREDNISOLONE (5 MG/DAY)
  7. BARICITINIB [Suspect]
     Active Substance: BARICITINIB
     Indication: COVID-19 pneumonia
  8. HEPARIN [Suspect]
     Active Substance: HEPARIN SODIUM
     Indication: COVID-19 pneumonia
     Dosage: HEPARIN (5,000 UNITS SUBCUTANEOUSLY EVERY 12 HOURS

REACTIONS (3)
  - Haematoma muscle [Recovering/Resolving]
  - Organising pneumonia [Recovering/Resolving]
  - Muscle abscess [Recovering/Resolving]
